FAERS Safety Report 5708553-8 (Version None)
Quarter: 2008Q2

REPORT INFORMATION
  Report Type: 
  Country: None (occurrence: None)
  Receive Date: 20080417
  Receipt Date: 20080408
  Transmission Date: 20081010
  Serious: Yes (Hospitalization)
  Sender: FDA-Public Use
  Company Number: PHHY2008BR05064

PATIENT
  Age: 11 Year
  Sex: Male
  Weight: 33 kg

DRUGS (4)
  1. RITALIN [Suspect]
     Indication: PSYCHOMOTOR HYPERACTIVITY
     Dosage: 2 TABLETS DAILY
     Route: 048
  2. RITALIN LA [Suspect]
     Indication: PSYCHOMOTOR HYPERACTIVITY
     Dosage: 20 MG, QD
     Route: 048
  3. RITALIN LA [Suspect]
     Dosage: 2 CAPSULES DAILY
     Route: 048
  4. AMITRIPTYLINE HCL [Concomitant]
     Indication: SLEEP DISORDER
     Dosage: 1 TABLET DAILY

REACTIONS (9)
  - ABDOMINAL PAIN [None]
  - AGGRESSION [None]
  - DIZZINESS [None]
  - DRUG INEFFECTIVE [None]
  - DRY MOUTH [None]
  - FOAMING AT MOUTH [None]
  - HEADACHE [None]
  - HYPERHIDROSIS [None]
  - INDURATION [None]
